FAERS Safety Report 5614676-4 (Version None)
Quarter: 2008Q1

REPORT INFORMATION
  Report Type: 
  Country: None (occurrence: None)
  Receive Date: 20080131
  Receipt Date: 20080124
  Transmission Date: 20080703
  Serious: Yes (Other)
  Sender: FDA-Public Use
  Company Number: 69098

PATIENT
  Sex: Male

DRUGS (2)
  1. NITETIME FREE 6HR LIQUID GEL / PERRIGO [Suspect]
     Dosage: ORAL
     Route: 048
  2. NITETIME FREE ORIGINAL 6HR LIQUID/ PERRIGO [Suspect]
     Dosage: ORAL
     Route: 048

REACTIONS (1)
  - CONVULSION [None]
